FAERS Safety Report 24029323 (Version 1)
Quarter: 2024Q2

REPORT INFORMATION
  Report Type: Spontaneous
  Country: SA (occurrence: SA)
  Receive Date: 20240628
  Receipt Date: 20240628
  Transmission Date: 20240716
  Serious: Yes (Hospitalization, Other)
  Sender: FDA-Public Use
  Company Number: SA-FDC-2024SALIT00463

PATIENT
  Age: 4 Month
  Sex: Female

DRUGS (6)
  1. TIMOLOL MALEATE [Suspect]
     Active Substance: TIMOLOL MALEATE
     Indication: Infantile haemangioma
     Route: 061
  2. COSYNTROPIN [Concomitant]
     Active Substance: COSYNTROPIN
     Indication: Product used for unknown indication
     Dosage: 75 UNIT/M2
     Route: 065
  3. VIGABATRIN [Concomitant]
     Active Substance: VIGABATRIN
     Indication: Product used for unknown indication
     Route: 065
  4. PREDNISOLONE [Concomitant]
     Active Substance: PREDNISOLONE
     Indication: Product used for unknown indication
     Route: 065
  5. HYDRALAZINE [Concomitant]
     Active Substance: HYDRALAZINE HYDROCHLORIDE
     Indication: Product used for unknown indication
     Route: 065
  6. OMEPRAZOLE [Concomitant]
     Active Substance: OMEPRAZOLE
     Indication: Product used for unknown indication
     Route: 065

REACTIONS (3)
  - Hyperkalaemia [Recovered/Resolved]
  - Off label use [Unknown]
  - Product use issue [Unknown]
